FAERS Safety Report 6339890-4 (Version None)
Quarter: 2009Q3

REPORT INFORMATION
  Report Type: 
  Country: None (occurrence: None)
  Receive Date: 20090903
  Receipt Date: 20090824
  Transmission Date: 20100115
  Serious: Yes (Hospitalization, Other)
  Sender: FDA-Public Use
  Company Number: BR-ABBOTT-08P-020-0445607-00

PATIENT
  Sex: Female
  Weight: 56 kg

DRUGS (7)
  1. HUMIRA [Suspect]
     Indication: RHEUMATOID ARTHRITIS
     Route: 058
     Dates: start: 20071001, end: 20080101
  2. HUMIRA [Suspect]
  3. HUMIRA [Suspect]
  4. HUMIRA [Suspect]
  5. TECNOMET [Concomitant]
     Indication: RHEUMATOID ARTHRITIS
     Route: 048
  6. PREDSIM [Concomitant]
     Indication: RHEUMATOID ARTHRITIS
     Dosage: 5 MG X 1/2 TABLET DAILY
     Route: 048
  7. ENDOFOLIN [Concomitant]
     Indication: PROPHYLAXIS
     Route: 048

REACTIONS (6)
  - ARTHRALGIA [None]
  - BONE EROSION [None]
  - FALL [None]
  - HIP FRACTURE [None]
  - JOINT INJURY [None]
  - OSTEOARTHRITIS [None]
